FAERS Safety Report 7497220-9 (Version None)
Quarter: 2011Q2

REPORT INFORMATION
  Report Type: 
  Country: None (occurrence: None)
  Receive Date: 20110523
  Receipt Date: 20110519
  Transmission Date: 20111010
  Serious: Yes (Other)
  Sender: FDA-Public Use
  Company Number: US-PFIZER INC-2011108417

PATIENT
  Sex: Female
  Weight: 77.098 kg

DRUGS (6)
  1. PRAVASTATIN [Concomitant]
     Indication: BLOOD CHOLESTEROL ABNORMAL
     Dosage: 20 MG, DAILY
  2. NORVASC [Concomitant]
     Indication: BLOOD PRESSURE ABNORMAL
     Dosage: 5 MG, DAILY
     Route: 048
  3. ADVIL LIQUI-GELS [Suspect]
     Indication: BACK PAIN
     Dosage: UNK
     Route: 048
     Dates: start: 20100101
  4. SYNTHROID [Concomitant]
     Indication: THYROID DISORDER
     Dosage: 100 UG, DAILY
     Route: 048
  5. LISINOPRIL [Concomitant]
     Dosage: UNK
  6. FISH OIL [Concomitant]
     Dosage: 1200 MG, 2X/DAY
     Route: 048

REACTIONS (3)
  - OCULAR HYPERAEMIA [None]
  - HOT FLUSH [None]
  - EYE SWELLING [None]
